FAERS Safety Report 10680865 (Version 3)
Quarter: 2015Q1

REPORT INFORMATION
  Report Type: Spontaneous
  Country: US (occurrence: US)
  Receive Date: 20141229
  Receipt Date: 20150130
  Transmission Date: 20150720
  Serious: No
  Sender: FDA-Public Use
  Company Number: US-BAYER-2014-190632

PATIENT
  Age: 22 Year
  Sex: Female

DRUGS (1)
  1. MIRENA [Suspect]
     Active Substance: LEVONORGESTREL
     Indication: CONTRACEPTION
     Dosage: 20 MCG/24HR, CONT
     Route: 015
     Dates: start: 20141222, end: 20141222

REACTIONS (7)
  - Presyncope [Recovered/Resolved]
  - Device difficult to use [None]
  - Complication of device insertion [Recovered/Resolved]
  - Post procedural discomfort [None]
  - Pain [None]
  - Patient-device incompatibility [None]
  - Device deployment issue [None]

NARRATIVE: CASE EVENT DATE: 20141222
